FAERS Safety Report 8990069 (Version 1)
Quarter: 2012Q4

REPORT INFORMATION
  Report Type: 
  Country: JP (occurrence: JP)
  Receive Date: 20121228
  Receipt Date: 20121228
  Transmission Date: 20130627
  Serious: Yes (Other)
  Sender: FDA-Public Use
  Company Number: JP-OTSUKA-JP-2012-17257

PATIENT
  Sex: Female

DRUGS (1)
  1. PLETAAL [Suspect]
     Dosage: UNK
     Route: 048

REACTIONS (2)
  - Bedridden [Unknown]
  - Loss of consciousness [Unknown]
